FAERS Safety Report 10386847 (Version 2)
Quarter: 2014Q3

REPORT INFORMATION
  Report Type: Spontaneous
  Country: DE (occurrence: DE)
  Receive Date: 20140815
  Receipt Date: 20140924
  Transmission Date: 20150326
  Serious: Yes (Hospitalization)
  Sender: FDA-Public Use
  Company Number: DE-BAYER-2014-118308

PATIENT
  Age: 18 Year
  Sex: Female

DRUGS (2)
  1. JAYDESS [Suspect]
     Active Substance: LEVONORGESTREL
     Indication: CONTRACEPTION
     Dosage: 12 MCG/24HR, CONT
     Route: 015
     Dates: start: 20140630, end: 20140710
  2. CYTOTEC [Concomitant]
     Active Substance: MISOPROSTOL
     Indication: THERAPEUTIC PROCEDURE
     Dosage: UNK
     Route: 048
     Dates: start: 20140630, end: 20140630

REACTIONS (3)
  - Ectopic pregnancy with contraceptive device [Recovered/Resolved]
  - Abortion of ectopic pregnancy [None]
  - Medication error [None]

NARRATIVE: CASE EVENT DATE: 2014
